FAERS Safety Report 7294984-4 (Version None)
Quarter: 2011Q1

REPORT INFORMATION
  Report Type: 
  Country: None (occurrence: None)
  Receive Date: 20110216
  Receipt Date: 20110209
  Transmission Date: 20110831
  Serious: Yes (Other)
  Sender: FDA-Public Use
  Company Number: US-JNJFOC-20110203437

PATIENT
  Sex: Female

DRUGS (2)
  1. FENTANYL-100 [Suspect]
     Indication: BACK PAIN
     Dosage: NDC#0781-7112-55
     Route: 062
  2. ACTAVIS FENTANYL TRANSDEMAL SYSTEM [Suspect]
     Indication: BACK PAIN
     Dosage: NDC#67767
     Route: 062

REACTIONS (3)
  - WRONG TECHNIQUE IN DRUG USAGE PROCESS [None]
  - HYPOXIA [None]
  - HYPOVENTILATION [None]
